FAERS Safety Report 15606302 (Version 3)
Quarter: 2022Q1

REPORT INFORMATION
  Report Type: Spontaneous
  Country: IT (occurrence: IT)
  Receive Date: 20181112
  Receipt Date: 20220303
  Transmission Date: 20220423
  Serious: Yes (Other)
  Sender: FDA-Public Use
  Company Number: IT-TEVA-2018-IT-973941

PATIENT
  Age: 24 Year
  Sex: Male

DRUGS (6)
  1. AMIKACIN [Suspect]
     Active Substance: AMIKACIN
     Indication: Mycetoma mycotic
     Route: 030
     Dates: start: 201706
  2. COTRIMOXAZOLE [Suspect]
     Active Substance: SULFAMETHOXAZOLE\TRIMETHOPRIM
     Indication: Mycetoma mycotic
     Dosage: TRIMETHOPRIM-SULFAMETHOXAZOLE - 240/1200MG
     Route: 065
     Dates: start: 201706
  3. RIFAMPIN [Suspect]
     Active Substance: RIFAMPIN
     Indication: Tuberculosis
     Route: 065
  4. FOLIC ACID [Concomitant]
     Active Substance: FOLIC ACID
     Indication: Leukopenia
  5. FILGRASTIM [Concomitant]
     Active Substance: FILGRASTIM
     Indication: Leukopenia
     Dosage: TAKEN TWICE
  6. ISONIAZID [Concomitant]
     Active Substance: ISONIAZID
     Indication: Tuberculosis

REACTIONS (3)
  - Leukopenia [Recovered/Resolved]
  - Vomiting [Unknown]
  - Abdominal pain [Unknown]
